FAERS Safety Report 24616783 (Version 1)
Quarter: 2024Q4

REPORT INFORMATION
  Report Type: Spontaneous
  Country: US (occurrence: US)
  Receive Date: 20241114
  Receipt Date: 20241114
  Transmission Date: 20250115
  Serious: No
  Sender: OTSUKA
  Company Number: US-OTSUKA-2024_006549

PATIENT
  Sex: Male
  Weight: 76.2 kg

DRUGS (1)
  1. NUEDEXTA [Suspect]
     Active Substance: DEXTROMETHORPHAN HYDROBROMIDE\QUINIDINE SULFATE
     Indication: Cerebrovascular accident
     Dosage: 1 DF (20MG-10MG), BID
     Route: 048

REACTIONS (4)
  - Mood altered [Unknown]
  - Therapy interrupted [Unknown]
  - Inability to afford medication [Unknown]
  - Product use in unapproved indication [Unknown]
